FAERS Safety Report 16413771 (Version 4)
Quarter: 2019Q3

REPORT INFORMATION
  Report Type: Spontaneous
  Country: DK (occurrence: DK)
  Receive Date: 20190611
  Receipt Date: 20190919
  Transmission Date: 20191004
  Serious: Yes (Other)
  Sender: FDA-Public Use
  Company Number: DK-SA-2019SA155373

PATIENT
  Sex: Female

DRUGS (2)
  1. AUBAGIO [Suspect]
     Active Substance: TERIFLUNOMIDE
     Dosage: UNK, UNK
     Dates: start: 201505
  2. THYCAPZOL [Concomitant]
     Active Substance: METHIMAZOLE
     Dosage: UNK UNK, UNK
     Route: 065

REACTIONS (3)
  - Hyperthyroidism [Unknown]
  - Multiple sclerosis relapse [Unknown]
  - Basedow^s disease [Unknown]

NARRATIVE: CASE EVENT DATE: 201505
